FAERS Safety Report 8430841 (Version 2)
Quarter: 2013Q2

REPORT INFORMATION
  Report Type: Spontaneous
  Country: US (occurrence: None)
  Receive Date: 20120215
  Receipt Date: 20120914
  Transmission Date: 20140414
  Serious: Yes (Hospitalization)
  Sender: FDA-Public Use
  Company Number: JPI-P-019628

PATIENT
  Age: 69 Year
  Sex: Male
  Weight: 64.86 kg

DRUGS (2)
  1. XYREM [Suspect]
     Indication: NARCOLEPSY
     Dosage: 1 GM (0.5 GM, 2 IN 1 D)
     Route: 048
     Dates: start: 20081015
  2. MULTIPLE UNSPECIFIED MEDICATIONS [Concomitant]

REACTIONS (2)
  - ARTHROPATHY [None]
  - DIARRHOEA [None]
